FAERS Safety Report 9511067 (Version 1)
Quarter: 2013Q1

REPORT INFORMATION
  Report Type: Spontaneous
  Country: US (occurrence: None)
  Receive Date: 20130305
  Receipt Date: 20130305
  Transmission Date: 20140127
  Serious: Yes (Other)
  Sender: FDA-Public Use
  Company Number: 163-21880-11081814

PATIENT
  Age: 84 Year
  Sex: Male
  Weight: 80.29 kg

DRUGS (19)
  1. REVLIMID [Suspect]
     Indication: PLASMA CELL MYELOMA
     Dosage: 10 MG, 1 IN 1 D, PO
     Route: 048
     Dates: start: 20100309
  2. VITAMIN C [Concomitant]
  3. ASPRIRN (ACETYLSALICYLIC ACID) (TABLETS) [Concomitant]
  4. CALCIUM + D (OS-CAL) (UNKNOWN) [Concomitant]
  5. FAMVIR (FAMCICLOVIR) (UNKNOWN) [Concomitant]
  6. MORPHINE SULFATE (MORPHINE SULFATE) (TABLETS) [Concomitant]
  7. PRAVACHOL (PRAVASTATIN SODIUM) (TABLETS)? [Concomitant]
  8. PREDNISONE (PREDNISONE) (UNKNOWN) [Concomitant]
  9. VITAMIN B-6 (PYRIDOXINE HYDROCHLORIDE) (UNKNOWN) [Concomitant]
  10. ZETIA (EZETIMIBE) (TABLETS) [Concomitant]
  11. ZOMETA (ZOLEDRONIC ACID) (INJECTION FOR INFUSION) [Concomitant]
  12. PROCHLORPERAZINE (PROCHLORPERAZINE) (TABLETS)? [Concomitant]
  13. CITALOPRAM (CITALOPRAM) (TABLETS)? [Concomitant]
  14. LOPERAMIDE (LOPERAMIDE) (TABLETS) [Concomitant]
  15. CIPROFLOXACIN (CIPROFLOXACIN) (TABLETS) [Concomitant]
  16. PYRIDOXINE HCL (PYRIDOXINE HYDROCHLORIDE) (TABLETS)? [Concomitant]
  17. ASCORBIC ACID, VITAMIN C (ASCORBIC ACID (VITAMIN C), COMBINATIONS) (TABLETS) [Concomitant]
  18. NITROGLYCERIN (GLYCERYL TRINITRATE) (TABLETS) [Concomitant]
  19. CALCIUM WITH VITAMIN D (CALCIUM W/ VITAMIN D) (TABLETS)? [Concomitant]

REACTIONS (4)
  - Pancytopenia [None]
  - Contusion [None]
  - Neutropenia [None]
  - Pyrexia [None]
